FAERS Safety Report 6443936-2 (Version None)
Quarter: 2009Q4

REPORT INFORMATION
  Report Type: 
  Country: None (occurrence: None)
  Receive Date: 20091113
  Receipt Date: 20091028
  Transmission Date: 20100525
  Serious: Yes (Other)
  Sender: FDA-Public Use
  Company Number: 426483

PATIENT
  Age: 51 Year
  Sex: Female
  Weight: 63 kg

DRUGS (4)
  1. EPIRUBICIN HYDROCHLORIDE [Suspect]
     Indication: DRUG USE FOR UNKNOWN INDICATION
     Dosage: 171 MG, INTRAVENOUS
     Route: 042
  2. FLUOROURACIL INJ [Suspect]
     Indication: DRUG USE FOR UNKNOWN INDICATION
     Dosage: 850 MG, INTRAVENOUS
     Route: 042
  3. DECADRON [Concomitant]
  4. ZOFRAN [Concomitant]

REACTIONS (5)
  - DYSPNOEA [None]
  - HYPOAESTHESIA ORAL [None]
  - MICTURITION URGENCY [None]
  - NASAL CONGESTION [None]
  - URTICARIA [None]
